FAERS Safety Report 25640381 (Version 3)
Quarter: 2025Q3

REPORT INFORMATION
  Report Type: Spontaneous
  Country: CA (occurrence: CA)
  Receive Date: 20250804
  Receipt Date: 20250818
  Transmission Date: 20251021
  Serious: Yes (Hospitalization, Other)
  Sender: PFIZER
  Company Number: CA-PFIZER INC-202500154147

PATIENT
  Age: 68 Year
  Sex: Female
  Weight: 46 kg

DRUGS (4)
  1. IXIFI [Suspect]
     Active Substance: INFLIXIMAB-QBTX
     Indication: Crohn^s disease
     Route: 042
     Dates: start: 20250714, end: 20250714
  2. IXIFI [Suspect]
     Active Substance: INFLIXIMAB-QBTX
     Route: 042
     Dates: start: 20250813
  3. METHOTREXATE [Concomitant]
     Active Substance: METHOTREXATE
     Dates: start: 202501
  4. PREDNISONE [Concomitant]
     Active Substance: PREDNISONE

REACTIONS (7)
  - Electrolyte imbalance [Unknown]
  - Retinal haemorrhage [Recovering/Resolving]
  - Scleral haemorrhage [Recovering/Resolving]
  - Vision blurred [Unknown]
  - Vitreous floaters [Unknown]
  - Eye pain [Unknown]
  - Brain fog [Unknown]
